FAERS Safety Report 4981697-4 (Version None)
Quarter: 2006Q2

REPORT INFORMATION
  Report Type: 
  Country: None (occurrence: None)
  Receive Date: 20060421
  Receipt Date: 20060412
  Transmission Date: 20061013
  Serious: Yes (Other)
  Sender: FDA-Public Use
  Company Number: 2006051410

PATIENT
  Sex: Female

DRUGS (2)
  1. NORVASC [Suspect]
     Indication: ILL-DEFINED DISORDER
  2. CADUET [Suspect]
     Indication: ILL-DEFINED DISORDER

REACTIONS (2)
  - DIABETES MELLITUS [None]
  - HYPERTENSION [None]
